FAERS Safety Report 23340721 (Version 1)
Quarter: 2023Q4

REPORT INFORMATION
  Report Type: Report from Study
  Country: US (occurrence: US)
  Receive Date: 20231227
  Receipt Date: 20231227
  Transmission Date: 20240110
  Serious: No
  Sender: FDA-Public Use
  Company Number: US-002147023-NVSC2023US147808

PATIENT
  Sex: Female
  Weight: 55.42 kg

DRUGS (2)
  1. TREPROSTINIL [Suspect]
     Active Substance: TREPROSTINIL
     Dosage: 40 NG/KG/MIN
     Route: 042
     Dates: start: 20230506
  2. TREPROSTINIL [Suspect]
     Active Substance: TREPROSTINIL
     Indication: Pulmonary arterial hypertension
     Dosage: 12 NG/KG/MIN, CONT
     Route: 042
     Dates: start: 20230605

REACTIONS (2)
  - Weight decreased [Unknown]
  - Nausea [Unknown]
